FAERS Safety Report 21895092 (Version 2)
Quarter: 2023Q1

REPORT INFORMATION
  Report Type: Report from Study
  Country: US (occurrence: US)
  Receive Date: 20230122
  Receipt Date: 20230329
  Transmission Date: 20230417
  Serious: Yes (Other)
  Sender: FDA-Public Use
  Company Number: US-MALLINCKRODT-T202300325

PATIENT
  Sex: Female

DRUGS (1)
  1. CORTICOTROPIN [Suspect]
     Active Substance: CORTICOTROPIN
     Indication: Pulmonary sarcoidosis
     Dosage: UNKNOWN

REACTIONS (2)
  - Diabetes mellitus [Unknown]
  - Upper respiratory tract infection [Not Recovered/Not Resolved]
